FAERS Safety Report 12519953 (Version 1)
Quarter: 2016Q2

REPORT INFORMATION
  Report Type: Spontaneous
  Country: US (occurrence: US)
  Receive Date: 20160630
  Receipt Date: 20160630
  Transmission Date: 20160815
  Serious: Yes (Death, Other)
  Sender: FDA-Public Use
  Company Number: US-TEVA-671579USA

PATIENT
  Sex: Female
  Weight: 40.86 kg

DRUGS (2)
  1. MORPHINE [Concomitant]
     Active Substance: MORPHINE
     Dates: start: 2008, end: 2016
  2. ACTIQ [Suspect]
     Active Substance: FENTANYL CITRATE
     Indication: CYSTITIS INTERSTITIAL
     Route: 065
     Dates: start: 2008, end: 2016

REACTIONS (2)
  - Death [Fatal]
  - Product use issue [Unknown]

NARRATIVE: CASE EVENT DATE: 2008
